FAERS Safety Report 5274971-8 (Version None)
Quarter: 2007Q1

REPORT INFORMATION
  Report Type: 
  Country: None (occurrence: None)
  Receive Date: 20061207
  Receipt Date: 20060105
  Transmission Date: 20070707
  Serious: Yes (Death)
  Sender: FDA-Public Use
  Company Number: 2005UW18887

PATIENT
  Age: 62 Year
  Sex: Male
  Weight: 103.41 kg

DRUGS (6)
  1. TOPROL-XL [Suspect]
     Indication: CARDIAC DISORDER
     Dosage: 50 MG PO
     Route: 048
     Dates: start: 19960101
  2. LIPITOR [Concomitant]
  3. LASIX [Concomitant]
  4. K-DUR 10 [Concomitant]
  5. MULTI-VITAMIN [Concomitant]
  6. ASPIRIN [Concomitant]

REACTIONS (2)
  - ACUTE MYOCARDIAL INFARCTION [None]
  - CARDIAC FAILURE [None]
